FAERS Safety Report 5207343-2 (Version None)
Quarter: 2007Q1

REPORT INFORMATION
  Report Type: 
  Country: None (occurrence: None)
  Receive Date: 20070110
  Receipt Date: 20061227
  Transmission Date: 20070707
  Serious: Yes (Other)
  Sender: FDA-Public Use
  Company Number: RENA-12068

PATIENT

DRUGS (1)
  1. RENAGEL [Suspect]
     Indication: DRUG USE FOR UNKNOWN INDICATION

REACTIONS (2)
  - DUODENITIS [None]
  - INTESTINAL OBSTRUCTION [None]
